FAERS Safety Report 10408180 (Version 1)
Quarter: 2014Q3

REPORT INFORMATION
  Report Type: Report from Study
  Country: US (occurrence: US)
  Receive Date: 20140826
  Receipt Date: 20140826
  Transmission Date: 20150326
  Serious: Yes (Hospitalization)
  Sender: FDA-Public Use
  Company Number: US-ROCHE-1452139

PATIENT
  Sex: Male

DRUGS (6)
  1. NUTROPIN AQ [Suspect]
     Active Substance: SOMATROPIN
     Indication: HYPOPITUITARISM
     Route: 058
  2. VENTOLIN HFA [Concomitant]
     Active Substance: ALBUTEROL SULFATE
     Dosage: 90 MCG/ACTUATION
     Route: 065
  3. HYDROCORTISONE. [Concomitant]
     Active Substance: HYDROCORTISONE
     Route: 048
  4. DULERA [Concomitant]
     Active Substance: FORMOTEROL FUMARATE DIHYDRATE\MOMETASONE FUROATE
  5. DDAVP [Concomitant]
     Active Substance: DESMOPRESSIN ACETATE
     Dosage: 10 MCG/SPRAY (0.1 ML)
     Route: 045
  6. SYNTHROID [Concomitant]
     Active Substance: LEVOTHYROXINE SODIUM
     Route: 048

REACTIONS (10)
  - Peripheral swelling [Unknown]
  - Insulin-like growth factor decreased [Unknown]
  - Hyponatraemia [Unknown]
  - Dyspepsia [Unknown]
  - Blood testosterone decreased [Unknown]
  - Myalgia [Unknown]
  - Hot flush [Unknown]
  - Dry skin [Unknown]
  - Blood prolactin decreased [Unknown]
  - Cough [Unknown]
